FAERS Safety Report 21662958 (Version 1)
Quarter: 2022Q4

REPORT INFORMATION
  Report Type: Spontaneous
  Country: JP (occurrence: JP)
  Receive Date: 20221130
  Receipt Date: 20221130
  Transmission Date: 20230113
  Serious: Yes (Other)
  Sender: FDA-Public Use
  Company Number: JP-PFIZER INC-PV202200110686

PATIENT
  Age: 37 Year
  Sex: Female

DRUGS (6)
  1. SULFASALAZINE [Suspect]
     Active Substance: SULFASALAZINE
     Indication: Rheumatoid arthritis
     Dosage: UNK
  2. PREDNISOLONE [Suspect]
     Active Substance: PREDNISOLONE
     Dosage: 0.25 MG/KG, 1X/DAY
  3. PREDNISOLONE [Suspect]
     Active Substance: PREDNISOLONE
     Dosage: 1 MG/KG, 1X/DAY
  4. TACROLIMUS [Suspect]
     Active Substance: TACROLIMUS
     Dosage: 0.013 MG/KG, 1X/DAY
  5. TACROLIMUS [Suspect]
     Active Substance: TACROLIMUS
     Dosage: 0.025 MG/KG, 1X/DAY
  6. BUCILLAMINE [Suspect]
     Active Substance: BUCILLAMINE
     Dosage: UNK

REACTIONS (2)
  - Drug intolerance [Unknown]
  - Maternal exposure during pregnancy [Unknown]
